FAERS Safety Report 8265290-6 (Version None)
Quarter: 2012Q2

REPORT INFORMATION
  Report Type: 
  Country: None (occurrence: None)
  Receive Date: 20120406
  Receipt Date: 20120326
  Transmission Date: 20120825
  Serious: Yes (Death, Other)
  Sender: FDA-Public Use
  Company Number: TH-ROCHE-779897

PATIENT
  Sex: Male

DRUGS (6)
  1. EPREX [Suspect]
     Dosage: 8000/WEEK
     Route: 058
  2. EPREX [Suspect]
     Dosage: 4000/WEEK
     Route: 058
  3. MIRCERA [Suspect]
     Indication: NEPHROGENIC ANAEMIA
     Route: 058
     Dates: start: 20100119, end: 20110526
  4. EPREX [Suspect]
     Dosage: 4000/WEEK
     Route: 058
  5. EPREX [Suspect]
     Dosage: 8000/WEEK
     Route: 058
     Dates: start: 20091020, end: 20100119
  6. EPREX [Suspect]
     Indication: NEPHROGENIC ANAEMIA
     Dosage: 2000/WEEK
     Route: 058

REACTIONS (2)
  - APLASIA PURE RED CELL [None]
  - SEPSIS [None]
